FAERS Safety Report 8838351 (Version 3)
Quarter: 2012Q4

REPORT INFORMATION
  Report Type: 
  Country: IT (occurrence: IT)
  Receive Date: 20121012
  Receipt Date: 20121213
  Transmission Date: 20130627
  Serious: Yes (Other)
  Sender: FDA-Public Use
  Company Number: IT-GLAXOSMITHKLINE-B0837234A

PATIENT
  Age: 59 Year
  Sex: Female

DRUGS (1)
  1. RHYTHMOL [Suspect]
     Indication: ARRHYTHMIA
     Dosage: 650MG Per day
     Route: 048
     Dates: start: 20090101, end: 20120904

REACTIONS (3)
  - Abdominal pain upper [Recovered/Resolved with Sequelae]
  - Dyspepsia [Recovered/Resolved with Sequelae]
  - Oesophagitis [Unknown]
